FAERS Safety Report 19803093 (Version 1)
Quarter: 2021Q3

REPORT INFORMATION
  Report Type: Spontaneous
  Country: US (occurrence: US)
  Receive Date: 20210903
  Receipt Date: 20210903
  Transmission Date: 20211014
  Serious: Yes (Hospitalization)
  Sender: FDA-Public Use
  Company Number: None

PATIENT
  Sex: Male

DRUGS (1)
  1. CYCLOSPORINE MODIFIED [Suspect]
     Active Substance: CYCLOSPORINE
     Indication: ORGAN TRANSPLANT
     Route: 048
     Dates: start: 20210706

REACTIONS (5)
  - Pyrexia [None]
  - Pancytopenia [None]
  - Aplastic anaemia [None]
  - Neutropenia [None]
  - Infection [None]
